FAERS Safety Report 16960463 (Version 3)
Quarter: 2019Q4

REPORT INFORMATION
  Report Type: Spontaneous
  Country: CA (occurrence: CA)
  Receive Date: 20191025
  Receipt Date: 20191221
  Transmission Date: 20200122
  Serious: Yes (Other)
  Sender: FDA-Public Use
  Company Number: CA-CELLTRION INC.-2019CA025073

PATIENT

DRUGS (9)
  1. INFLECTRA [Suspect]
     Active Substance: INFLIXIMAB-DYYB
     Indication: COLITIS ULCERATIVE
     Dosage: 600 MG Q 0, 1, 4 WEEKS, THEN EVERY 8 WEEKS (2 DOSES (COMBINED FOR WEEK 0))
     Route: 042
     Dates: start: 20190901, end: 20190904
  2. INFLECTRA [Suspect]
     Active Substance: INFLIXIMAB-DYYB
     Dosage: 1100 MG Q 0, 1, 4 WEEKS, THEN EVERY 8 WEEKS
     Route: 042
     Dates: start: 20190917
  3. PREDNISONE. [Concomitant]
     Active Substance: PREDNISONE
     Dosage: UNK
  4. FLAGYL [Concomitant]
     Active Substance: METRONIDAZOLE\METRONIDAZOLE HYDROCHLORIDE
     Dosage: UNK
  5. MEZAVANT [Concomitant]
     Active Substance: MESALAMINE
     Dosage: UNK
  6. INFLECTRA [Suspect]
     Active Substance: INFLIXIMAB-DYYB
     Dosage: 600 MG Q 0, 1, 4 WEEKS, THEN EVERY 8 WEEKS
     Route: 042
     Dates: start: 20190904
  7. INFLECTRA [Suspect]
     Active Substance: INFLIXIMAB-DYYB
     Dosage: 1100 MG Q 0, 1, 4 WEEKS, THEN EVERY 8 WEEKS
     Route: 042
     Dates: start: 20191129
  8. CIPRO [Concomitant]
     Active Substance: CIPROFLOXACIN HYDROCHLORIDE
     Dosage: UNK
  9. INFLECTRA [Suspect]
     Active Substance: INFLIXIMAB-DYYB
     Dosage: 1100 MG Q 0, 1, 4 WEEKS, THEN EVERY 8 WEEKS
     Route: 042
     Dates: start: 20191002

REACTIONS (6)
  - Inappropriate schedule of product administration [Unknown]
  - Colitis ulcerative [Unknown]
  - Loss of personal independence in daily activities [Unknown]
  - Weight increased [Unknown]
  - Off label use [Unknown]
  - Blood pressure fluctuation [Unknown]

NARRATIVE: CASE EVENT DATE: 20190901
